FAERS Safety Report 7249635-1 (Version None)
Quarter: 2011Q1

REPORT INFORMATION
  Report Type: 
  Country: None (occurrence: None)
  Receive Date: 20110128
  Receipt Date: 20101215
  Transmission Date: 20110831
  Serious: Yes (Hospitalization, Other)
  Sender: FDA-Public Use
  Company Number: US-BAYER-201012150NA

PATIENT
  Sex: Female
  Weight: 96.599 kg

DRUGS (15)
  1. MULTIVITAMIN [Concomitant]
  2. CIPROFLOXACIN [Concomitant]
     Dosage: UNK
     Dates: start: 20060801
  3. UNCODEABLE ^UNCLASSIFIABLE^ [Concomitant]
     Dosage: UNK
     Dates: start: 20060101
  4. LUNESTA [Concomitant]
     Indication: INSOMNIA
     Dosage: UNK
     Dates: start: 20080101
  5. BELLAMINE S [Concomitant]
     Dosage: UNK
     Dates: start: 20060701
  6. MELOXICAM [Concomitant]
     Dosage: UNK
     Dates: start: 20080201
  7. HYDROCODONE [Concomitant]
     Indication: PAIN
     Dosage: UNK
     Dates: start: 20080101
  8. YAZ [Suspect]
     Indication: MENOPAUSE
     Dosage: UNK UNK, QD
     Route: 048
     Dates: start: 20071001, end: 20080404
  9. ANTITHROMBOTIC AGENTS [Concomitant]
  10. PHENTERMINE [Concomitant]
     Dosage: UNK
     Dates: start: 20080301
  11. PHENAZOPYRIDINE HCL TAB [Concomitant]
     Dosage: UNK
     Dates: start: 20060801
  12. ANTIBIOTICS [Concomitant]
  13. ASCORBIC ACID [Concomitant]
  14. MERIDIA [Concomitant]
     Dosage: UNK
     Dates: start: 20070701
  15. UNCODEABLE ^UNCLASSIFIABLE^ [Concomitant]
     Dosage: UNK
     Dates: start: 20070101

REACTIONS (7)
  - PULMONARY EMBOLISM [None]
  - PAIN IN EXTREMITY [None]
  - CHEST DISCOMFORT [None]
  - DEEP VEIN THROMBOSIS [None]
  - OEDEMA PERIPHERAL [None]
  - HEART RATE INCREASED [None]
  - DIZZINESS [None]
